FAERS Safety Report 21976246 (Version 3)
Quarter: 2023Q2

REPORT INFORMATION
  Report Type: Spontaneous
  Country: CA (occurrence: CA)
  Receive Date: 20230210
  Receipt Date: 20230509
  Transmission Date: 20230722
  Serious: Yes (Other)
  Sender: FDA-Public Use
  Company Number: CA-CELLTRION INC.-2022CA014067

PATIENT

DRUGS (27)
  1. INFLECTRA [Suspect]
     Active Substance: INFLIXIMAB-DYYB
     Indication: Crohn^s disease
     Dosage: 5 MG/KG (5 MG/KG, WEEK 0,2,6 THEN Q 8 WEEKS)
     Route: 042
     Dates: start: 20220708, end: 20221013
  2. INFLECTRA [Suspect]
     Active Substance: INFLIXIMAB-DYYB
     Dosage: 5 MG/KG (5 MG/KG, WEEK 0,2,6 THEN Q 8 WEEKS)
     Route: 042
     Dates: start: 20220720
  3. INFLECTRA [Suspect]
     Active Substance: INFLIXIMAB-DYYB
     Dosage: 5 MG/KG (5 MG/KG, WEEK 0,2,6 THEN Q 8 WEEKS)
     Route: 042
     Dates: start: 20220818
  4. INFLECTRA [Suspect]
     Active Substance: INFLIXIMAB-DYYB
     Dosage: 5 MG/KG (5 MG/KG, WEEK 0,2,6 THEN Q 8 WEEKS)
     Route: 042
     Dates: start: 20221013
  5. INFLECTRA [Suspect]
     Active Substance: INFLIXIMAB-DYYB
     Dosage: 5 MG/KG (5 MG/KG, EVERY 6 WEEKS)
     Route: 042
     Dates: start: 20221130, end: 20221130
  6. INFLECTRA [Suspect]
     Active Substance: INFLIXIMAB-DYYB
     Dosage: 450 MG (450 MG (5MG/KG) SUPPOSED TO RECEIVE 7.5MG/KG (REINDUCTION) ON WEEKS 0, 2, 6, THEN Q 6WEEKS)
     Route: 042
     Dates: start: 20221219, end: 20221219
  7. INFLECTRA [Suspect]
     Active Substance: INFLIXIMAB-DYYB
     Dosage: 7.5MG EVERY 6 WEEKS
     Route: 042
     Dates: start: 20230131
  8. AMLODIPINE [Concomitant]
     Active Substance: AMLODIPINE BESYLATE
     Dosage: 5 MG, DOSAGE NOT AVAILABLE
     Route: 065
  9. ASPIRIN [Concomitant]
     Active Substance: ASPIRIN
     Dosage: 80 MG, DOSAGE NOT AVAILABLE
     Route: 065
  10. BISOPROLOL [Concomitant]
     Active Substance: BISOPROLOL
     Dosage: 5 MG, DOSAGE NOT AVAILABLE
     Route: 065
  11. BRIMONIDINE [Concomitant]
     Active Substance: BRIMONIDINE TARTRATE
     Dosage: 1 DF DOSAGE NOT AVAILABLE
     Route: 047
  12. BRINZOLAMIDE [Concomitant]
     Active Substance: BRINZOLAMIDE
     Dosage: 1 DF DOSAGE NOT AVAILABLE
     Route: 047
  13. EMPAGLIFLOZIN [Concomitant]
     Active Substance: EMPAGLIFLOZIN
     Dosage: 25 MG, DOSAGE NOT AVAILABLE
     Route: 065
  14. FERROUS SULFATE [Concomitant]
     Active Substance: FERROUS SULFATE
     Dosage: 300 MG, DOSAGE NOT AVAILABLE
     Route: 065
  15. FUROSEMIDE [Concomitant]
     Active Substance: FUROSEMIDE
     Dosage: 40 MG, DOSAGE NOT AVAILABLE
     Route: 065
  16. LATANOPROST [Concomitant]
     Active Substance: LATANOPROST
     Dosage: 1 DF, DOSAGE NOT AVAILABLE
     Route: 047
  17. LEVOTHYROXINE [Concomitant]
     Active Substance: LEVOTHYROXINE
     Dosage: 150 MG, DOSAGE NOT AVAILABLE
     Route: 065
  18. NPH INSULIN [Concomitant]
     Active Substance: INSULIN BEEF
     Indication: Blood glucose abnormal
     Dosage: 20 IU, 1X/DAY, DEPENDING OF THE BLOOD SUGAR AND CORTISONE DOSE
     Route: 058
  19. PANTOPRAZOLE [Concomitant]
     Active Substance: PANTOPRAZOLE
     Dosage: 40 MG, DOSAGE NOT AVAILABLE
     Route: 065
  20. SODIUM POLYSTYRENE SULFONATE [Concomitant]
     Active Substance: SODIUM POLYSTYRENE SULFONATE
     Dosage: 1 DF, DOSAGE NOT AVAILABLE
     Route: 048
  21. PREDNISOLONE [Concomitant]
     Active Substance: PREDNISOLONE
     Dosage: 1 DF DOSAGE NOT AVAILABLE
     Route: 047
  22. PREGABALIN [Concomitant]
     Active Substance: PREGABALIN
     Dosage: 50 MG, DOSAGE NOT AVAILABLE
     Route: 065
  23. ROSUVASTATIN [Concomitant]
     Active Substance: ROSUVASTATIN
     Dosage: 5 MG, DOSAGE NOT AVAILABLE
     Route: 065
  24. SITAGLIPTIN [Concomitant]
     Active Substance: SITAGLIPTIN
     Dosage: 50 MG, DOSAGE NOT AVAILABLE
     Route: 065
  25. TIMOLOL [Concomitant]
     Active Substance: TIMOLOL
     Dosage: 1 DF, DOSAGE NOT AVAILABLE
     Route: 047
  26. VEDOLIZUMAB [Concomitant]
     Active Substance: VEDOLIZUMAB
     Dosage: 300 MG, DOSAGE NOT AVAILABLE
     Route: 065
  27. VITAMIN B12 [Concomitant]
     Active Substance: CYANOCOBALAMIN
     Dosage: 5 MG, DOSAGE NOT AVAILABLE
     Route: 065

REACTIONS (10)
  - Osteitis deformans [Not Recovered/Not Resolved]
  - Arthralgia [Not Recovered/Not Resolved]
  - Blood pressure increased [Unknown]
  - Drug level below therapeutic [Not Recovered/Not Resolved]
  - Condition aggravated [Recovered/Resolved]
  - Malaise [Unknown]
  - Off label use [Unknown]
  - Off label use [Unknown]
  - Intentional product use issue [Unknown]
  - Incorrect dose administered [Unknown]

NARRATIVE: CASE EVENT DATE: 20220101
